FAERS Safety Report 16791667 (Version 1)
Quarter: 2019Q4

REPORT INFORMATION
  Report Type: Spontaneous
  Country: US (occurrence: US)
  Receive Date: 20190910
  Receipt Date: 20190910
  Transmission Date: 20200122
  Serious: No
  Sender: FDA-Public Use
  Company Number: None

PATIENT
  Age: 35 Year
  Sex: Female
  Weight: 63.9 kg

DRUGS (1)
  1. EQUATE COOL AND HEAT PAIN RELIEVING LIQUID [Suspect]
     Active Substance: MENTHOL
     Indication: MYALGIA
     Dosage: ?          QUANTITY:1 16% METHANOL;??
     Route: 061
     Dates: start: 20190906, end: 20190906

REACTIONS (4)
  - Skin burning sensation [None]
  - Scar [None]
  - Product substitution issue [None]
  - Application site burn [None]

NARRATIVE: CASE EVENT DATE: 20190906
